FAERS Safety Report 8879646 (Version 2)
Quarter: 2013Q3

REPORT INFORMATION
  Report Type: Spontaneous
  Country: ES (occurrence: ES)
  Receive Date: 20121031
  Receipt Date: 20130807
  Transmission Date: 20140515
  Serious: Yes (Hospitalization)
  Sender: FDA-Public Use
  Company Number: PHHY2012ES096848

PATIENT
  Age: 22 Year
  Sex: Male

DRUGS (2)
  1. FAMOTIDINE [Suspect]
     Dosage: 1 DF, UNK
  2. DICLOFENAC [Concomitant]
     Dosage: 1 DF, UNK

REACTIONS (6)
  - Anaphylactic reaction [Not Recovered/Not Resolved]
  - Urticaria [Not Recovered/Not Resolved]
  - Pruritus genital [Not Recovered/Not Resolved]
  - Rash [Not Recovered/Not Resolved]
  - Generalised erythema [Not Recovered/Not Resolved]
  - Conjunctival hyperaemia [Not Recovered/Not Resolved]
